FAERS Safety Report 9308596 (Version 1)
Quarter: 2013Q2

REPORT INFORMATION
  Report Type: Report from Study
  Country: US (occurrence: US)
  Receive Date: 20130524
  Receipt Date: 20130524
  Transmission Date: 20140414
  Serious: Yes (Hospitalization)
  Sender: FDA-Public Use
  Company Number: US-ROCHE-1227909

PATIENT
  Age: 61 Year
  Sex: Female

DRUGS (3)
  1. BEVACIZUMAB [Suspect]
     Indication: OVARIAN CANCER
     Dosage: LAST DOSE PRIOR TO SAE : 11/APR/2013
     Route: 042
     Dates: start: 20121115
  2. CARBOPLATIN [Suspect]
     Indication: OVARIAN CANCER
     Dosage: LAST DOSE PRIOR TO SAE : 07/FEB/2013
     Route: 042
     Dates: start: 20121025
  3. PACLITAXEL [Suspect]
     Indication: OVARIAN CANCER
     Dosage: LAST DOSE PRIOR TO SAE : 07/FEB/2013
     Route: 042
     Dates: start: 20121025

REACTIONS (1)
  - Encephalopathy [Not Recovered/Not Resolved]
